APPROVED DRUG PRODUCT: MINOXIDIL (FOR WOMEN)
Active Ingredient: MINOXIDIL
Strength: 2%
Dosage Form/Route: SOLUTION;TOPICAL
Application: A074767 | Product #002
Applicant: AUROBINDO PHARMA LTD
Approved: Nov 25, 1997 | RLD: No | RS: No | Type: DISCN